FAERS Safety Report 18358485 (Version 2)
Quarter: 2020Q4

REPORT INFORMATION
  Report Type: Spontaneous
  Country: AU (occurrence: AU)
  Receive Date: 20201008
  Receipt Date: 20201129
  Transmission Date: 20210114
  Serious: Yes (Other)
  Sender: FDA-Public Use
  Company Number: AU-BRISTOL-MYERS SQUIBB COMPANY-BMS-2020-081996

PATIENT
  Age: 61 Year
  Sex: Male
  Weight: 57 kg

DRUGS (4)
  1. BISOPROLOL [Concomitant]
     Active Substance: BISOPROLOL
     Indication: PRODUCT USED FOR UNKNOWN INDICATION
     Route: 065
  2. RAMIPRIL. [Concomitant]
     Active Substance: RAMIPRIL
     Indication: PRODUCT USED FOR UNKNOWN INDICATION
     Route: 065
  3. ELIQUIS [Suspect]
     Active Substance: APIXABAN
     Indication: PRODUCT USED FOR UNKNOWN INDICATION
     Dosage: 5 MILLIGRAM, BID
     Route: 048
     Dates: start: 2017
  4. AMIODARONE [Concomitant]
     Active Substance: AMIODARONE
     Indication: PRODUCT USED FOR UNKNOWN INDICATION
     Route: 065

REACTIONS (22)
  - Tremor [Unknown]
  - Product storage error [Unknown]
  - Shock [Unknown]
  - Psychological trauma [Unknown]
  - Insomnia [Unknown]
  - Paraesthesia [Unknown]
  - Product taste abnormal [Unknown]
  - Drug ineffective [Unknown]
  - Dysstasia [Unknown]
  - Hypoaesthesia [Unknown]
  - Discomfort [Unknown]
  - Bradycardia [Unknown]
  - Illness [Unknown]
  - Manufacturing stability testing issue [Unknown]
  - Thrombosis [Unknown]
  - Product colour issue [Unknown]
  - Dizziness [Unknown]
  - Pain [Unknown]
  - Blood viscosity increased [Unknown]
  - Dyspnoea [Unknown]
  - Chest discomfort [Unknown]
  - Pain in extremity [Unknown]

NARRATIVE: CASE EVENT DATE: 202009
